FAERS Safety Report 7295771-3 (Version None)
Quarter: 2011Q1

REPORT INFORMATION
  Report Type: 
  Country: None (occurrence: None)
  Receive Date: 20110216
  Receipt Date: 20110119
  Transmission Date: 20110831
  Serious: No
  Sender: FDA-Public Use
  Company Number: US-ABBOTT-11P-163-0699086-00

PATIENT
  Sex: Male
  Weight: 106.69 kg

DRUGS (3)
  1. SIMCOR [Suspect]
     Indication: HIGH DENSITY LIPOPROTEIN DECREASED
     Dosage: 500/20MG
  2. ACTOS [Concomitant]
     Indication: PRODUCT USED FOR UNKNOWN INDICATION
  3. ASPIRIN [Concomitant]
     Indication: PRODUCT USED FOR UNKNOWN INDICATION

REACTIONS (3)
  - ERYTHEMA [None]
  - FLUSHING [None]
  - PARAESTHESIA [None]
